FAERS Safety Report 19068765 (Version 2)
Quarter: 2021Q2

REPORT INFORMATION
  Report Type: Report from Study
  Country: US (occurrence: US)
  Receive Date: 20210329
  Receipt Date: 20210412
  Transmission Date: 20210717
  Serious: Yes (Other)
  Sender: FDA-Public Use
  Company Number: US-OTSUKA-2021_010070

PATIENT

DRUGS (1)
  1. TOLVAPTAN [Suspect]
     Active Substance: TOLVAPTAN
     Indication: CONGENITAL CYSTIC KIDNEY DISEASE
     Dosage: UNK
     Route: 065
     Dates: start: 20210324

REACTIONS (6)
  - Thirst [Unknown]
  - Aspartate aminotransferase increased [Unknown]
  - Weight decreased [Unknown]
  - Dehydration [Unknown]
  - Polyuria [Unknown]
  - Nocturia [Unknown]

NARRATIVE: CASE EVENT DATE: 20210324
